FAERS Safety Report 8392613-X (Version None)
Quarter: 2012Q2

REPORT INFORMATION
  Report Type: 
  Country: None (occurrence: None)
  Receive Date: 20120529
  Receipt Date: 20120522
  Transmission Date: 20120825
  Serious: Yes (Congenital Anomaly, Other)
  Sender: FDA-Public Use
  Company Number: GXKR2012DE001807

PATIENT
  Sex: Female
  Weight: 2.75 kg

DRUGS (7)
  1. CLOBAZAM [Suspect]
     Dosage: MATERNAL DOSE: 30 MG/D FROM GW11; 25 MG/D FROM GW 32 TO 33+1; 20 MG/D FROM GW33+2 UNTIL DELIVERY
     Route: 064
  2. CARBAMAZEPINE [Suspect]
     Dosage: MATERNAL DOSE: 600 MG/D (GW21.1-39.2)
     Route: 064
  3. TOPIRAMATE [Suspect]
     Dosage: MATERNAL DOSE: 2X150 MG/D (GW0-39.2)
     Route: 064
  4. FOLIC ACID [Concomitant]
     Dosage: MATERNAL DOSE: 5 MG/D (GW11-21)
     Route: 064
  5. LAMOTRIGINE [Concomitant]
     Dosage: MATERNAL DOSE: INCREASING FROM 25 MG/D TO 175 MG/D (GW11-19.1)
     Route: 064
  6. LEVOTHYROXINE SODIUM [Concomitant]
     Indication: HYPOTHYROIDISM
     Dosage: MATERNAL DOSE: 50 UG/D (GW0-39.2)
     Route: 064
  7. VALPROIC ACID [Suspect]
     Dosage: MATERNAL DOSE: 2X600 MG/D (GW0-11)
     Route: 064

REACTIONS (6)
  - VENTRICULAR SEPTAL DEFECT [None]
  - CONGENITAL CYSTIC KIDNEY DISEASE [None]
  - ATRIAL SEPTAL DEFECT [None]
  - CONGENITAL ARTERIAL MALFORMATION [None]
  - FOETAL EXPOSURE DURING PREGNANCY [None]
  - SMALL FOR DATES BABY [None]
